FAERS Safety Report 10156329 (Version 2)
Quarter: 2014Q2

REPORT INFORMATION
  Report Type: Spontaneous
  Country: US (occurrence: US)
  Receive Date: 20140507
  Receipt Date: 20140612
  Transmission Date: 20141212
  Serious: Yes (Other)
  Sender: FDA-Public Use
  Company Number: US-PFIZER INC-2014122051

PATIENT
  Age: 90 Year
  Sex: Female

DRUGS (1)
  1. DETROL LA [Suspect]
     Dosage: UNK

REACTIONS (4)
  - Fall [Unknown]
  - Lower limb fracture [Unknown]
  - Drug effect incomplete [Unknown]
  - Bladder disorder [Unknown]
